FAERS Safety Report 17253813 (Version 1)
Quarter: 2020Q1

REPORT INFORMATION
  Report Type: Report from Study
  Country: FR (occurrence: FR)
  Receive Date: 20200109
  Receipt Date: 20200109
  Transmission Date: 20200409
  Serious: Yes (Other)
  Sender: FDA-Public Use
  Company Number: FR-JNJFOC-20200108058

PATIENT
  Sex: Male

DRUGS (2)
  1. STELARA [Suspect]
     Active Substance: USTEKINUMAB
     Indication: CROHN^S DISEASE
     Route: 042
  2. HUMIRA [Concomitant]
     Active Substance: ADALIMUMAB
     Route: 065

REACTIONS (6)
  - Dysphagia [Unknown]
  - Myalgia [Recovered/Resolved]
  - Abdominal pain upper [Unknown]
  - Obstruction [Unknown]
  - Headache [Recovered/Resolved]
  - Fatigue [Unknown]
